FAERS Safety Report 12995461 (Version 1)
Quarter: 2016Q4

REPORT INFORMATION
  Report Type: Spontaneous
  Country: DE (occurrence: DE)
  Receive Date: 20161202
  Receipt Date: 20161202
  Transmission Date: 20170207
  Serious: Yes (Other)
  Sender: FDA-Public Use
  Company Number: DE-MEDA-2016110062

PATIENT
  Age: 83 Year
  Sex: Male

DRUGS (13)
  1. TORASEMIDE [Suspect]
     Active Substance: TORSEMIDE
     Route: 048
     Dates: end: 20160803
  2. MIRTAZAPIN [Suspect]
     Active Substance: MIRTAZAPINE
     Route: 048
     Dates: start: 20160801, end: 20160801
  3. AMLODIPINE [Suspect]
     Active Substance: AMLODIPINE BESYLATE
     Route: 048
  4. FINASTERIDE. [Suspect]
     Active Substance: FINASTERIDE
     Route: 048
  5. XARELTO [Concomitant]
     Active Substance: RIVAROXABAN
  6. MIRTAZAPIN [Suspect]
     Active Substance: MIRTAZAPINE
     Dates: start: 20160804
  7. TAMSULOSIN [Concomitant]
     Active Substance: TAMSULOSIN
  8. METOPROLOL. [Suspect]
     Active Substance: METOPROLOL
     Route: 048
  9. TORASEMIDE [Suspect]
     Active Substance: TORSEMIDE
     Route: 048
     Dates: start: 20160804
  10. SPIRONOLACTONE. [Suspect]
     Active Substance: SPIRONOLACTONE
     Route: 048
     Dates: start: 20160802
  11. PANTOPRAZOL [Concomitant]
     Active Substance: PANTOPRAZOLE SODIUM
  12. SIMVASTATIN. [Concomitant]
     Active Substance: SIMVASTATIN
  13. MIRTAZAPIN [Suspect]
     Active Substance: MIRTAZAPINE
     Route: 048
     Dates: start: 20160802, end: 20160803

REACTIONS (1)
  - Fall [Recovered/Resolved]

NARRATIVE: CASE EVENT DATE: 20160803
